FAERS Safety Report 21708900 (Version 1)
Quarter: 2022Q4

REPORT INFORMATION
  Report Type: Report from Study
  Country: US (occurrence: US)
  Receive Date: 20221210
  Receipt Date: 20221210
  Transmission Date: 20230113
  Serious: Yes (Other)
  Sender: FDA-Public Use
  Company Number: US-002147023-NVSC2022US282227

PATIENT
  Sex: Female

DRUGS (1)
  1. KESIMPTA [Suspect]
     Active Substance: OFATUMUMAB
     Indication: Product used for unknown indication
     Dosage: UNK
     Route: 065

REACTIONS (22)
  - Multiple sclerosis [Unknown]
  - Syncope [Unknown]
  - Cataract diabetic [Unknown]
  - Type 1 diabetes mellitus [Unknown]
  - Neurogenic bladder [Unknown]
  - Essential hypertension [Unknown]
  - Malaise [Unknown]
  - Fatigue [Unknown]
  - Gait disturbance [Unknown]
  - Restless legs syndrome [Unknown]
  - Arthralgia [Unknown]
  - Amnesia [Unknown]
  - Attention deficit hyperactivity disorder [Unknown]
  - Dyskinesia [Unknown]
  - Cerebrovascular disorder [Unknown]
  - Migraine [Unknown]
  - Depression [Unknown]
  - Affect lability [Unknown]
  - Neck pain [Unknown]
  - Muscle spasms [Unknown]
  - Sleep disorder [Unknown]
  - Visual impairment [Unknown]
